FAERS Safety Report 21122892 (Version 1)
Quarter: 2022Q3

REPORT INFORMATION
  Report Type: Spontaneous
  Country: US (occurrence: US)
  Receive Date: 20220723
  Receipt Date: 20220723
  Transmission Date: 20221026
  Serious: No
  Sender: FDA-Public Use
  Company Number: US-TEVA-2022-US-2055227

PATIENT
  Sex: Female

DRUGS (2)
  1. METFORMIN [Interacting]
     Active Substance: METFORMIN HYDROCHLORIDE
     Indication: Diabetes mellitus
     Dosage: TOOK THE METFORMIN FOR TWO WEEKS AND STOPPED AND THEN RESTARTED AND STOPPED IT AGAIN AFTER ONE MONTH
     Dates: start: 2022
  2. LENVIMA [Interacting]
     Active Substance: LENVATINIB
     Indication: Renal cancer
     Dosage: 4 MILLIGRAM DAILY;
     Dates: start: 20210927

REACTIONS (2)
  - Abdominal pain upper [Unknown]
  - Drug interaction [Unknown]
